FAERS Safety Report 9747770 (Version 1)
Quarter: 2013Q4

REPORT INFORMATION
  Report Type: Spontaneous
  Country: BE (occurrence: None)
  Receive Date: 20131206
  Receipt Date: 20131206
  Transmission Date: 20140711
  Serious: Yes (Other)
  Sender: FDA-Public Use
  Company Number: DSM-2013-01141

PATIENT
  Age: 78 Year
  Sex: Male

DRUGS (2)
  1. BELSAR [Suspect]
     Indication: HYPERTENSION
     Route: 048
     Dates: start: 2010, end: 201303
  2. ASAFLOW (ACETYLSALICYLIC ACID (ACETYLSALICYLIC ACID) [Concomitant]

REACTIONS (2)
  - Colitis microscopic [None]
  - Intestinal villi atrophy [None]
